FAERS Safety Report 6015925-3 (Version None)
Quarter: 2008Q4

REPORT INFORMATION
  Report Type: 
  Country: None (occurrence: None)
  Receive Date: 20081219
  Receipt Date: 20081219
  Transmission Date: 20090506
  Serious: No
  Sender: FDA-Public Use
  Company Number: None

PATIENT
  Sex: Male
  Weight: 81.82 kg

DRUGS (11)
  1. LIDODERM [Suspect]
     Dosage: 1 PATCH QD TRANSDERMAL
     Route: 062
     Dates: start: 20081210, end: 20081218
  2. ALBUTEROL [Concomitant]
  3. FLONASE (FLUTICASONE NASAL SPRAY) [Concomitant]
  4. GLUCOPHAGE [Concomitant]
  5. GLYBURIDE [Concomitant]
  6. NITROSTAT [Concomitant]
  7. NORVASC [Concomitant]
  8. QUALAQUIN (QUININE SULFATE CAP) [Concomitant]
  9. RANITIDINE HCL [Concomitant]
  10. VASOTEC [Concomitant]
  11. XANAX [Concomitant]

REACTIONS (1)
  - APPLICATION SITE RASH [None]
